FAERS Safety Report 21979093 (Version 1)
Quarter: 2023Q1

REPORT INFORMATION
  Report Type: Spontaneous
  Country: US (occurrence: None)
  Receive Date: 20230209
  Receipt Date: 20230209
  Transmission Date: 20230418
  Serious: Yes (Life-Threatening, Hospitalization)
  Sender: FDA-Public Use
  Company Number: None

PATIENT
  Age: 79 Year
  Sex: Male

DRUGS (2)
  1. ASPIRIN [Suspect]
     Active Substance: ASPIRIN
  2. ENOXAPARIN [Suspect]
     Active Substance: ENOXAPARIN

REACTIONS (7)
  - Melaena [None]
  - Faeces discoloured [None]
  - Syncope [None]
  - Haemoglobin decreased [None]
  - Haematocrit decreased [None]
  - Occult blood positive [None]
  - Duodenal ulcer [None]

NARRATIVE: CASE EVENT DATE: 20221125
